FAERS Safety Report 5339699-4 (Version None)
Quarter: 2007Q2

REPORT INFORMATION
  Report Type: 
  Country: None (occurrence: None)
  Receive Date: 20070531
  Receipt Date: 20070522
  Transmission Date: 20071010
  Serious: Yes (Life-Threatening)
  Sender: FDA-Public Use
  Company Number: DE-JNJFOC-20070506078

PATIENT
  Age: 63 Year
  Sex: Male

DRUGS (4)
  1. REOPRO [Suspect]
     Indication: DRUG USE FOR UNKNOWN INDICATION
  2. CLOPIDOGREL [Concomitant]
  3. HEPARIN [Concomitant]
     Route: 013
  4. ASPIRIN [Concomitant]

REACTIONS (1)
  - IN-STENT ARTERIAL RESTENOSIS [None]
